FAERS Safety Report 18277528 (Version 1)
Quarter: 2020Q3

REPORT INFORMATION
  Report Type: Spontaneous
  Country: DE (occurrence: DE)
  Receive Date: 20200917
  Receipt Date: 20200917
  Transmission Date: 20201103
  Serious: Yes (Hospitalization, Other)
  Sender: FDA-Public Use
  Company Number: DE-TEVA-2020-DE-1827756

PATIENT
  Age: 47 Year
  Sex: Male

DRUGS (6)
  1. RISPERDAL [Suspect]
     Active Substance: RISPERIDONE
     Indication: SCHIZOPHRENIA
     Dosage: DOSAGE FORM: UNSPECIFIED,  4MG
     Route: 048
     Dates: end: 20130319
  2. SPIRIVA [Concomitant]
     Active Substance: TIOTROPIUM BROMIDE MONOHYDRATE
     Dosage: 2 STROKE DAILY DOSE, 2 DOSAGE FORMS
     Route: 065
  3. BELOC?ZOK [Concomitant]
     Active Substance: METOPROLOL SUCCINATE
     Dosage: DOSAGE FORM: UNSPECIFIED, 47.5MG
     Route: 048
  4. CLOZAPIN [Suspect]
     Active Substance: CLOZAPINE
     Dosage: DOSAGE FORM: UNSPECIFIED, 575MG
     Route: 048
  5. RIVOTRIL [Concomitant]
     Active Substance: CLONAZEPAM
     Dosage: DOSAGE FORM: UNSPECIFIED, 2MG
     Route: 048
     Dates: end: 20130323
  6. PANTOZOL [Concomitant]
     Active Substance: PANTOPRAZOLE SODIUM
     Dosage: DOSAGE FORM: UNSPECIFIED, 20MG
     Route: 048

REACTIONS (3)
  - Drug ineffective [Unknown]
  - Dyskinesia [Recovered/Resolved]
  - Disturbance in attention [Unknown]

NARRATIVE: CASE EVENT DATE: 20130317
